FAERS Safety Report 18383720 (Version 2)
Quarter: 2020Q4

REPORT INFORMATION
  Report Type: Spontaneous
  Country: JP (occurrence: JP)
  Receive Date: 20201014
  Receipt Date: 20201208
  Transmission Date: 20210114
  Serious: Yes (Other)
  Sender: FDA-Public Use
  Company Number: JP-PFIZER INC-2020394099

PATIENT
  Age: 24 Year
  Sex: Female

DRUGS (14)
  1. TOARASET [Suspect]
     Active Substance: ACETAMINOPHEN\TRAMADOL HYDROCHLORIDE
     Dosage: 1 DF (TABLET), 3X/DAY
     Route: 048
     Dates: start: 20201017
  2. ABILIFY [Suspect]
     Active Substance: ARIPIPRAZOLE
     Dosage: 6 MG, 2X/DAY
  3. BELSOMRA [Concomitant]
     Active Substance: SUVOREXANT
     Dosage: 20 MG, 1X/DAY
  4. LYRICA [Suspect]
     Active Substance: PREGABALIN
     Dosage: 75 MG, 1X/DAY (BEFORE BED)
     Route: 048
     Dates: start: 20201005, end: 20201006
  5. LYRICA [Suspect]
     Active Substance: PREGABALIN
     Dosage: 75 MG, 150 MG, 2X/DAY (IN THE MORNING AND BEFORE BED)
     Route: 048
     Dates: start: 20201007, end: 20201009
  6. VALACICLOVIR HYDROCHLORIDE [Concomitant]
     Active Substance: VALACYCLOVIR HYDROCHLORIDE
     Indication: HERPES OPHTHALMIC
     Dosage: 500 MG, 2X/DAY
     Route: 048
     Dates: start: 20201005, end: 20201009
  7. FLUNITRAZEPAM [Concomitant]
     Active Substance: FLUNITRAZEPAM
     Dosage: 2 MG, 1X/DAY
  8. BIPERIDEN [Concomitant]
     Active Substance: BIPERIDEN
     Dosage: 1 MG, 3X/DAY
  9. LEVOTOMIN [LEVOMEPROMAZINE HYDROCHLORIDE] [Concomitant]
     Dosage: 10 MG, 25 MG, 3X/DAY (IN THE MORNING AND NOON, BEFORE BEDTIME)
  10. LANSOPRAZOLE. [Concomitant]
     Active Substance: LANSOPRAZOLE
     Dosage: 15 MG, 1X/DAY
  11. NITRAZEPAM [Concomitant]
     Active Substance: NITRAZEPAM
     Dosage: 5 MG, 1X/DAY
  12. TOARASET [Suspect]
     Active Substance: ACETAMINOPHEN\TRAMADOL HYDROCHLORIDE
     Dosage: 1 DF (TABLET), 3X/DAY
     Route: 048
     Dates: start: 20201007, end: 20201016
  13. RISPERIDONE. [Suspect]
     Active Substance: RISPERIDONE
     Dosage: 2 MG, 2X/DAY
  14. QUETIAPINE. [Suspect]
     Active Substance: QUETIAPINE
     Dosage: 75 MG, AS NEEDED

REACTIONS (2)
  - Loss of consciousness [Recovered/Resolved]
  - Seizure [Recovered/Resolved]

NARRATIVE: CASE EVENT DATE: 20201008
